FAERS Safety Report 4516680-6 (Version None)
Quarter: 2004Q4

REPORT INFORMATION
  Report Type: 
  Country: None (occurrence: None)
  Receive Date: 20041202
  Receipt Date: 20041122
  Transmission Date: 20050328
  Serious: Yes (Death, Hospitalization)
  Sender: FDA-Public Use
  Company Number: FR-BRISTOL-MYERS SQUIBB COMPANY-12776076

PATIENT
  Age: 50 Year
  Sex: Male

DRUGS (4)
  1. ERBITUX [Suspect]
     Indication: COLORECTAL CANCER
     Route: 042
     Dates: start: 20040524, end: 20040909
  2. CALCIUM FOLINATE [Suspect]
     Indication: COLORECTAL CANCER
     Route: 042
     Dates: start: 20040301, end: 20040923
  3. CAMPTOSAR [Suspect]
     Indication: COLORECTAL CANCER
     Route: 042
     Dates: start: 20040422, end: 20040925
  4. FLUOROURACIL [Suspect]
     Indication: COLORECTAL CANCER
     Route: 042
     Dates: start: 20040301, end: 20040925

REACTIONS (1)
  - BONE MARROW DEPRESSION [None]
